FAERS Safety Report 7743212-1 (Version None)
Quarter: 2011Q3

REPORT INFORMATION
  Report Type: 
  Country: None (occurrence: None)
  Receive Date: 20110912
  Receipt Date: 20110830
  Transmission Date: 20111222
  Serious: Yes (Hospitalization, Other)
  Sender: FDA-Public Use
  Company Number: CA-ELI_LILLY_AND_COMPANY-CA201108008868

PATIENT
  Sex: Male

DRUGS (6)
  1. ZYPREXA [Suspect]
     Dosage: 20 MG, UNK
  2. ALTACE [Concomitant]
  3. ZYPREXA [Suspect]
     Indication: SCHIZOPHRENIA
     Dosage: 5 MG, UNK
  4. ZYPREXA [Suspect]
     Dosage: 15 MG, UNK
  5. METOPROLOL SUCCINATE [Concomitant]
  6. ZYPREXA [Suspect]
     Dosage: 10 MG, UNK

REACTIONS (8)
  - HYPERGLYCAEMIA [None]
  - PERIPHERAL VASCULAR DISORDER [None]
  - HYPERLIPIDAEMIA [None]
  - SKIN ULCER [None]
  - DIABETES MELLITUS INADEQUATE CONTROL [None]
  - ANAEMIA [None]
  - WHITE BLOOD CELL COUNT INCREASED [None]
  - PLATELET COUNT INCREASED [None]
